FAERS Safety Report 8232235-4 (Version None)
Quarter: 2012Q1

REPORT INFORMATION
  Report Type: 
  Country: None (occurrence: None)
  Receive Date: 20120323
  Receipt Date: 20120316
  Transmission Date: 20120608
  Serious: Yes (Other)
  Sender: FDA-Public Use
  Company Number: US-ABBOTT-12P-163-0916681-00

PATIENT
  Sex: Female
  Weight: 68.1 kg

DRUGS (6)
  1. OMEPRAZOLE [Concomitant]
     Indication: PRODUCT USED FOR UNKNOWN INDICATION
  2. HUMIRA [Suspect]
     Indication: RHEUMATOID ARTHRITIS
     Route: 058
     Dates: start: 20100101, end: 20110901
  3. METHOTREXATE [Concomitant]
     Indication: RHEUMATOID ARTHRITIS
  4. VICODIN [Concomitant]
     Indication: PAIN
  5. PROZAC [Concomitant]
     Indication: PRODUCT USED FOR UNKNOWN INDICATION
  6. CYMBALTA [Concomitant]
     Indication: PRODUCT USED FOR UNKNOWN INDICATION

REACTIONS (4)
  - TENDON RUPTURE [None]
  - MUSCULOSKELETAL PAIN [None]
  - LIGAMENT RUPTURE [None]
  - RHEUMATOID ARTHRITIS [None]
